FAERS Safety Report 8354850-X (Version None)
Quarter: 2012Q2

REPORT INFORMATION
  Report Type: 
  Country: None (occurrence: None)
  Receive Date: 20120510
  Receipt Date: 20120427
  Transmission Date: 20120825
  Serious: Yes (Death, Life-Threatening, Hospitalization, Other)
  Sender: FDA-Public Use
  Company Number: 2011030079

PATIENT
  Age: 60 Year
  Sex: Male

DRUGS (9)
  1. XANAX [Concomitant]
  2. EXALGO (HYDROMORPHONE HCL) [Concomitant]
  3. ZOFRAN [Concomitant]
  4. PHENERGAN [Concomitant]
  5. ONSOLIS [Suspect]
     Indication: CANCER PAIN
     Dosage: SEE IMAGE
     Route: 002
     Dates: start: 20100806
  6. ONSOLIS [Suspect]
     Indication: CANCER PAIN
     Dosage: SEE IMAGE
     Route: 002
     Dates: start: 20100101
  7. RESTORIL [Concomitant]
  8. VALIUM [Concomitant]
  9. PROZAC [Concomitant]

REACTIONS (7)
  - KIDNEY INFECTION [None]
  - DERMAL CYST [None]
  - WHITE BLOOD CELL COUNT ABNORMAL [None]
  - MALIGNANT MELANOMA [None]
  - UNRESPONSIVE TO STIMULI [None]
  - MYOCARDIAL INFARCTION [None]
  - PARALYSIS [None]
